FAERS Safety Report 7545330-X (Version None)
Quarter: 2011Q2

REPORT INFORMATION
  Report Type: 
  Country: None (occurrence: None)
  Receive Date: 20110614
  Receipt Date: 20110607
  Transmission Date: 20111010
  Serious: Yes (Death, Other)
  Sender: FDA-Public Use
  Company Number: CA-ELI_LILLY_AND_COMPANY-CA201106001734

PATIENT
  Sex: Male

DRUGS (12)
  1. ZYPREXA ZYDIS [Suspect]
     Dosage: 10 MG, BID
  2. VALPROATE SODIUM [Concomitant]
  3. PERCOCET [Concomitant]
  4. LOXAPINE HCL [Concomitant]
  5. ZYPREXA [Suspect]
     Indication: BIPOLAR DISORDER
     Dosage: 5 MG, UNKNOWN
  6. ZYPREXA ZYDIS [Suspect]
     Indication: BIPOLAR DISORDER
     Dosage: 10 MG, UNKNOWN
  7. DEPAKENE [Concomitant]
  8. LITHIUM [Concomitant]
  9. SYNTHROID [Concomitant]
  10. ZYPREXA ZYDIS [Suspect]
     Dosage: 5 MG, UNKNOWN
  11. IBUPROFEN [Concomitant]
  12. ZYPREXA [Suspect]
     Dosage: 15 MG, UNKNOWN

REACTIONS (5)
  - HEPATIC NECROSIS [None]
  - PANCREATITIS ACUTE [None]
  - RENAL FAILURE [None]
  - HEPATOMEGALY [None]
  - CARDIAC ARREST [None]
